FAERS Safety Report 7225388-8 (Version None)
Quarter: 2011Q1

REPORT INFORMATION
  Report Type: 
  Country: None (occurrence: None)
  Receive Date: 20110113
  Receipt Date: 20110110
  Transmission Date: 20110831
  Serious: Yes (Other)
  Sender: FDA-Public Use
  Company Number: DK-PFIZER INC-2010140379

PATIENT
  Age: 39 Year
  Sex: Male

DRUGS (2)
  1. ZELDOX [Suspect]
     Indication: SOMATIC DELUSION
     Dosage: 240 MG, 1X/DAY
     Route: 048
     Dates: start: 20070822, end: 20070914
  2. PALIPERIDONE [Concomitant]
     Route: 048

REACTIONS (6)
  - WEIGHT INCREASED [None]
  - ARTHROPATHY [None]
  - MUSCLE DISORDER [None]
  - CARDIAC ARREST [None]
  - CARDIAC DISORDER [None]
  - PSORIASIS [None]
